FAERS Safety Report 4390382-1 (Version None)
Quarter: 2004Q2

REPORT INFORMATION
  Report Type: 
  Country: None (occurrence: None)
  Receive Date: 20040630
  Receipt Date: 20040615
  Transmission Date: 20050107
  Serious: Yes (Hospitalization)
  Sender: FDA-Public Use
  Company Number: 2004-BP-04717NB

PATIENT
  Age: 67 Year
  Sex: Male

DRUGS (2)
  1. MIRAPEX [Suspect]
     Indication: RESTLESS LEGS SYNDROME
     Dosage: PO
     Route: 048
  2. INSULIN (AMV) [Concomitant]

REACTIONS (3)
  - CEREBRAL INFARCTION [None]
  - MEDICATION ERROR [None]
  - OFF LABEL USE [None]
